FAERS Safety Report 9360046 (Version 1)
Quarter: 2013Q2

REPORT INFORMATION
  Report Type: Spontaneous
  Country: US (occurrence: None)
  Receive Date: 20130620
  Receipt Date: 20130620
  Transmission Date: 20140414
  Serious: Yes (Disabling)
  Sender: FDA-Public Use
  Company Number: None

PATIENT
  Sex: Female
  Weight: 118.2 kg

DRUGS (1)
  1. WELCHOL [Suspect]
     Indication: BLOOD TRIGLYCERIDES INCREASED
     Dosage: 625 MILLIGRAM TABLETS  6 TABLETS PER DAY?
     Route: 048
     Dates: start: 201208

REACTIONS (1)
  - Renal disorder [None]
